FAERS Safety Report 5301696-2 (Version None)
Quarter: 2007Q2

REPORT INFORMATION
  Report Type: 
  Country: None (occurrence: None)
  Receive Date: 20070419
  Receipt Date: 20070327
  Transmission Date: 20071010
  Serious: Yes (Death)
  Sender: FDA-Public Use
  Company Number: JP-ROCHE-490689

PATIENT
  Age: 45 Year
  Sex: Male

DRUGS (2)
  1. TAMIFLU [Suspect]
     Indication: INFLUENZA
     Route: 048
  2. TAMIFLU [Suspect]
     Dosage: DOSE INCREASED.
     Route: 048

REACTIONS (1)
  - COMPLETED SUICIDE [None]
